FAERS Safety Report 4610500-7 (Version None)
Quarter: 2005Q1

REPORT INFORMATION
  Report Type: 
  Country: None (occurrence: None)
  Receive Date: 20050301
  Receipt Date: 20050121
  Transmission Date: 20050727
  Serious: No
  Sender: FDA-Public Use
  Company Number: WAES 0501USA03458

PATIENT
  Age: 79 Year
  Sex: Female

DRUGS (6)
  1. ZETIA [Suspect]
     Indication: BLOOD CHOLESTEROL INCREASED
     Dosage: 10 MG/ DAILY/ PO
     Route: 048
     Dates: start: 20040701, end: 20041201
  2. HYDRODIURIL [Concomitant]
  3. MEVACOR [Concomitant]
  4. PREMARIN [Concomitant]
  5. PRINIVIL [Concomitant]
  6. SYNTHROID [Concomitant]

REACTIONS (1)
  - ALOPECIA [None]
